FAERS Safety Report 9233218 (Version 1)
Quarter: 2013Q2

REPORT INFORMATION
  Report Type: Spontaneous
  Country: US (occurrence: US)
  Receive Date: 20130416
  Receipt Date: 20130416
  Transmission Date: 20140414
  Serious: Yes (Other)
  Sender: FDA-Public Use
  Company Number: US-BANPHARM-20130897

PATIENT
  Age: 62 Year
  Sex: Male
  Weight: 127.01 kg

DRUGS (2)
  1. ALEVE LIQUID GELS 220MG [Suspect]
     Indication: PAIN
     Route: 048
     Dates: start: 2012
  2. BLOOD PRESSURE MEDICATION [Concomitant]

REACTIONS (1)
  - Haematochezia [Not Recovered/Not Resolved]
